FAERS Safety Report 7124956-1 (Version None)
Quarter: 2010Q4

REPORT INFORMATION
  Report Type: 
  Country: None (occurrence: None)
  Receive Date: 20101129
  Receipt Date: 20101118
  Transmission Date: 20110411
  Serious: Yes (Other)
  Sender: FDA-Public Use
  Company Number: US-AMGEN-QUU410842

PATIENT

DRUGS (8)
  1. NPLATE [Suspect]
     Indication: IDIOPATHIC THROMBOCYTOPENIC PURPURA
     Dosage: 68 A?G, QWK
     Route: 058
     Dates: start: 20091211, end: 20100112
  2. NPLATE [Suspect]
     Dates: start: 20091125, end: 20100112
  3. MULTI-VITAMINS [Concomitant]
     Dosage: UNK UNK, QD
  4. HYDROCHLOROTHIAZIDE [Concomitant]
     Dosage: 12.5 MG, QD
  5. LISINOPRIL [Concomitant]
     Dosage: 20 MG, QD
  6. ANASTROZOLE [Concomitant]
     Dosage: 1 MG, QD
  7. OMEPRAZOLE [Concomitant]
  8. LETROZOLE [Concomitant]

REACTIONS (3)
  - DRUG INEFFECTIVE [None]
  - INCREASED TENDENCY TO BRUISE [None]
  - THERAPEUTIC RESPONSE DECREASED [None]
